FAERS Safety Report 12424184 (Version 1)
Quarter: 2016Q2

REPORT INFORMATION
  Report Type: Spontaneous
  Country: US (occurrence: US)
  Receive Date: 20160601
  Receipt Date: 20160601
  Transmission Date: 20160815
  Serious: No
  Sender: FDA-Public Use
  Company Number: US-NOVEN PHARMACEUTICALS, INC.-US2015001090

PATIENT
  Age: 38 Year
  Sex: Female

DRUGS (5)
  1. AVASTIN [Concomitant]
     Active Substance: BEVACIZUMAB
  2. DAYTRANA [Suspect]
     Active Substance: METHYLPHENIDATE
     Indication: PROPHYLAXIS
     Dosage: 30 MG, UNKNOWN
     Route: 062
     Dates: start: 2010
  3. CYMBALTA [Concomitant]
     Active Substance: DULOXETINE HYDROCHLORIDE
  4. CONCERTA [Concomitant]
     Active Substance: METHYLPHENIDATE HYDROCHLORIDE
     Dosage: 120 MG, QD
  5. NEUROTIN [Concomitant]
     Active Substance: GABAPENTIN
     Dosage: 1200 MG, QD

REACTIONS (2)
  - No adverse event [Unknown]
  - Off label use [Unknown]

NARRATIVE: CASE EVENT DATE: 2010
